FAERS Safety Report 8292267-7 (Version None)
Quarter: 2012Q2

REPORT INFORMATION
  Report Type: 
  Country: None (occurrence: None)
  Receive Date: 20120417
  Receipt Date: 20120410
  Transmission Date: 20120825
  Serious: Yes (Other)
  Sender: FDA-Public Use
  Company Number: BR-ROCHE-1023825

PATIENT
  Sex: Female

DRUGS (6)
  1. AMITRIPTYLINE HCL [Concomitant]
     Route: 065
  2. LOSARTAN POTASSIUM [Concomitant]
     Route: 065
  3. METFORMIN HCL [Concomitant]
     Route: 065
  4. HYDROCHLOROTHIAZIDE [Concomitant]
     Route: 065
  5. XOLAIR [Suspect]
     Indication: PRODUCT USED FOR UNKNOWN INDICATION
     Dosage: 4 AMPOULES AT ONCE
     Route: 065
     Dates: start: 20111201
  6. FLUOXETINE [Concomitant]
     Route: 065

REACTIONS (11)
  - ASTHENIA [None]
  - PAIN IN EXTREMITY [None]
  - SWELLING [None]
  - CHOKING [None]
  - RASH [None]
  - COUGH [None]
  - ASTHMA [None]
  - FEELING HOT [None]
  - MALAISE [None]
  - FATIGUE [None]
  - BURNING SENSATION [None]
